FAERS Safety Report 10190858 (Version 1)
Quarter: 2014Q2

REPORT INFORMATION
  Report Type: Spontaneous
  Country: US (occurrence: None)
  Receive Date: 20140521
  Receipt Date: 20140521
  Transmission Date: 20141212
  Serious: Yes (Disabling)
  Sender: FDA-Public Use
  Company Number: None

PATIENT
  Age: 28 Day
  Sex: Female
  Weight: 58.97 kg

DRUGS (1)
  1. AVELOX 400MG BAYER HEALTHCARE PHARMACEUTICALS [Suspect]
     Indication: SINUSITIS
     Route: 048
     Dates: start: 20140517, end: 20140518

REACTIONS (7)
  - Tremor [None]
  - Arthralgia [None]
  - Headache [None]
  - Pain in extremity [None]
  - Hypoaesthesia [None]
  - Peripheral coldness [None]
  - Pain in extremity [None]
